FAERS Safety Report 18658680 (Version 1)
Quarter: 2020Q4

REPORT INFORMATION
  Report Type: Spontaneous
  Country: US (occurrence: US)
  Receive Date: 20201224
  Receipt Date: 20201224
  Transmission Date: 20210114
  Serious: Yes (Death, Other)
  Sender: FDA-Public Use
  Company Number: US-UNITED THERAPEUTICS-UNT-2020-019874

PATIENT
  Sex: Male

DRUGS (5)
  1. IRINOTECAN [Concomitant]
     Active Substance: IRINOTECAN
     Indication: EWING^S SARCOMA
     Dosage: UNK
     Route: 041
  2. TEMOZOLOMIDE. [Concomitant]
     Active Substance: TEMOZOLOMIDE
     Indication: EWING^S SARCOMA
     Dosage: UNK
     Route: 041
  3. TEMSIROLIMUS. [Concomitant]
     Active Substance: TEMSIROLIMUS
     Indication: EWING^S SARCOMA
     Dosage: UNK
     Route: 041
  4. TOPOTECAN [Concomitant]
     Active Substance: TOPOTECAN HYDROCHLORIDE
     Indication: EWING^S SARCOMA
     Dosage: UNK
     Route: 065
  5. UNITUXIN [Suspect]
     Active Substance: DINUTUXIMAB
     Indication: EWING^S SARCOMA
     Dosage: UNK UNK, CYCLICAL
     Route: 041

REACTIONS (4)
  - Pneumonia [Fatal]
  - Ewing^s sarcoma [Unknown]
  - Off label use [Unknown]
  - Sepsis [Fatal]
